FAERS Safety Report 6474295-7 (Version None)
Quarter: 2009Q4

REPORT INFORMATION
  Report Type: 
  Country: None (occurrence: None)
  Receive Date: 20091204
  Receipt Date: 20091201
  Transmission Date: 20100525
  Serious: Yes (Death, Other)
  Sender: FDA-Public Use
  Company Number: PHHY2009JP47135

PATIENT
  Sex: Male
  Weight: 72 kg

DRUGS (4)
  1. AREDIA [Suspect]
     Indication: MULTIPLE MYELOMA
     Dosage: 45 MG AT UNSPECIFIED INTERVAL
     Route: 042
     Dates: start: 20050101, end: 20060517
  2. AREDIA [Suspect]
     Dosage: 45 MG AT UNSPECIFIED INTERVAL
     Route: 042
     Dates: start: 20060712, end: 20060906
  3. ZOMETA [Suspect]
     Indication: MULTIPLE MYELOMA
     Dosage: 4 MG AT UNSPECIFIED INTERVALS
     Route: 042
     Dates: start: 20060531, end: 20060628
  4. STEROIDS NOS [Concomitant]

REACTIONS (13)
  - ALVEOLAR OSTEITIS [None]
  - BONE DISORDER [None]
  - DEATH [None]
  - HAEMODIALYSIS [None]
  - LOOSE TOOTH [None]
  - OSTEOMYELITIS [None]
  - OSTEONECROSIS [None]
  - PERIODONTITIS [None]
  - PURULENT DISCHARGE [None]
  - RENAL FAILURE [None]
  - TOOTH DISORDER [None]
  - TOOTH EXTRACTION [None]
  - TOOTHACHE [None]
